FAERS Safety Report 5606675-3 (Version None)
Quarter: 2008Q1

REPORT INFORMATION
  Report Type: 
  Country: None (occurrence: None)
  Receive Date: 20080129
  Receipt Date: 20080122
  Transmission Date: 20080703
  Serious: Yes (Hospitalization)
  Sender: FDA-Public Use
  Company Number: JP-ASTRAZENECA-2008AP00393

PATIENT
  Age: 21386 Day
  Sex: Male
  Weight: 59 kg

DRUGS (6)
  1. CRESTOR [Suspect]
     Indication: HYPERLIPIDAEMIA
     Route: 048
     Dates: start: 20071117, end: 20071204
  2. BLOSTAR M [Concomitant]
     Indication: GASTRIC ULCER
     Route: 048
     Dates: start: 20071117, end: 20071204
  3. SIGMART [Concomitant]
     Indication: ANGINA PECTORIS
     Route: 065
     Dates: start: 20071117
  4. NITOROL R [Concomitant]
     Indication: ANGINA PECTORIS
     Route: 048
     Dates: start: 20071117
  5. ASPIRIN [Concomitant]
     Indication: ANGINA PECTORIS
     Route: 048
     Dates: start: 20071123
  6. ARTIST [Concomitant]
     Indication: HYPERTENSION
     Route: 048
     Dates: start: 20071128

REACTIONS (3)
  - HEPATIC ENZYME INCREASED [None]
  - PYREXIA [None]
  - WHITE BLOOD CELL COUNT INCREASED [None]
